FAERS Safety Report 16982595 (Version 1)
Quarter: 2019Q4

REPORT INFORMATION
  Report Type: Spontaneous
  Country: US (occurrence: US)
  Receive Date: 20191101
  Receipt Date: 20191101
  Transmission Date: 20200122
  Serious: Yes (Other)
  Sender: FDA-Public Use
  Company Number: US-ABBVIE-19K-163-2981346-00

PATIENT
  Age: 73 Year
  Sex: Female
  Weight: 52.21 kg

DRUGS (1)
  1. SYNTHROID [Suspect]
     Active Substance: LEVOTHYROXINE SODIUM
     Indication: PRODUCT USED FOR UNKNOWN INDICATION
     Dosage: BEFORE FIRST MEAL
     Route: 048

REACTIONS (5)
  - Abdominal distension [Unknown]
  - Spinal operation [Unknown]
  - Feeling cold [Unknown]
  - Alopecia [Unknown]
  - Unevaluable event [Unknown]

NARRATIVE: CASE EVENT DATE: 1995
